FAERS Safety Report 20724927 (Version 7)
Quarter: 2022Q3

REPORT INFORMATION
  Report Type: Report from Study
  Country: US (occurrence: US)
  Receive Date: 20220419
  Receipt Date: 20220918
  Transmission Date: 20221026
  Serious: Yes (Other)
  Sender: FDA-Public Use
  Company Number: US-NOVARTISTESTPH-NVSC2022US086000

PATIENT
  Age: 46 Year
  Sex: Female

DRUGS (1)
  1. KESIMPTA [Suspect]
     Active Substance: OFATUMUMAB
     Indication: Multiple sclerosis
     Dosage: UNK
     Route: 058
     Dates: start: 20220322

REACTIONS (9)
  - Hepatic cirrhosis [Unknown]
  - Viral hepatitis carrier [Unknown]
  - Fatigue [Unknown]
  - Adjustment disorder with depressed mood [Unknown]
  - Blood alkaline phosphatase increased [Unknown]
  - Haemoptysis [Unknown]
  - Depression [Unknown]
  - Emphysema [Unknown]
  - Sleep apnoea syndrome [Unknown]

NARRATIVE: CASE EVENT DATE: 20220413
